FAERS Safety Report 18751290 (Version 5)
Quarter: 2022Q4

REPORT INFORMATION
  Report Type: Spontaneous
  Country: FR (occurrence: None)
  Receive Date: 20210118
  Receipt Date: 20221215
  Transmission Date: 20230113
  Serious: Yes (Other)
  Sender: FDA-Public Use
  Company Number: FR-ROCHE-2585236

PATIENT
  Age: 11 Year
  Sex: Male
  Weight: 56 kg

DRUGS (3)
  1. ALECENSA [Suspect]
     Active Substance: ALECTINIB HYDROCHLORIDE
     Indication: Anaplastic large-cell lymphoma
     Dosage: ALECENSA 150 MG 2 TABLETS MORNING AND EVENING UP TO AND INCLUDING 20 FEBRUARY 2023
     Route: 065
     Dates: start: 20200402, end: 20200423
  2. ALECENSA [Suspect]
     Active Substance: ALECTINIB HYDROCHLORIDE
     Dosage: ONE TABLET MORNING AND EVENING
     Route: 065
     Dates: start: 20200424, end: 20200921
  3. ALECENSA [Suspect]
     Active Substance: ALECTINIB HYDROCHLORIDE
     Dosage: ALECENSA 150 MG?300 MG WHICH IS 2 TABLETS MORNING AND EVENING
     Route: 065

REACTIONS (5)
  - Depression [Unknown]
  - Haemolytic anaemia [Recovering/Resolving]
  - Off label use [Unknown]
  - Photosensitivity reaction [Recovered/Resolved]
  - Weight increased [Unknown]

NARRATIVE: CASE EVENT DATE: 20200513
